FAERS Safety Report 5961612-7 (Version None)
Quarter: 2008Q4

REPORT INFORMATION
  Report Type: 
  Country: None (occurrence: None)
  Receive Date: 20081121
  Receipt Date: 20081112
  Transmission Date: 20090506
  Serious: Yes (Other)
  Sender: FDA-Public Use
  Company Number: JP-AVENTIS-200813510JP

PATIENT
  Age: 78 Year
  Sex: Female

DRUGS (3)
  1. LANTUS [Suspect]
     Dosage: DOSE: 4 UNITS
     Route: 058
     Dates: start: 20081104, end: 20081106
  2. NOVOLIN R [Concomitant]
     Route: 042
     Dates: start: 20081101
  3. NOVOLIN R [Concomitant]
     Route: 058
     Dates: start: 20081101

REACTIONS (1)
  - HEPATIC FUNCTION ABNORMAL [None]
